FAERS Safety Report 20356838 (Version 1)
Quarter: 2022Q1

REPORT INFORMATION
  Report Type: Spontaneous
  Country: US (occurrence: None)
  Receive Date: 20220119
  Receipt Date: 20220119
  Transmission Date: 20220423
  Serious: Yes (Hospitalization)
  Sender: FDA-Public Use
  Company Number: None

PATIENT
  Sex: Male

DRUGS (11)
  1. NEULASTA [Suspect]
     Active Substance: PEGFILGRASTIM
     Indication: Product used for unknown indication
     Dosage: FREQUENCY : EVERY THREE WEEKS;?
     Route: 058
  2. OXYCODONE [Concomitant]
     Active Substance: OXYCODONE
  3. BICALUTAMIDE [Concomitant]
     Active Substance: BICALUTAMIDE
  4. FLOMAX [Concomitant]
     Active Substance: TAMSULOSIN HYDROCHLORIDE
  5. AIMOVIG [Concomitant]
     Active Substance: ERENUMAB-AOOE
  6. TYLENOL [Concomitant]
     Active Substance: ACETAMINOPHEN
  7. IBUPROFEN [Concomitant]
     Active Substance: IBUPROFEN
  8. OMEPRAZOLE [Concomitant]
     Active Substance: OMEPRAZOLE
  9. ATENOLOL [Concomitant]
     Active Substance: ATENOLOL
  10. PREDNISONE [Concomitant]
     Active Substance: PREDNISONE
  11. ABIRATERONE [Concomitant]
     Active Substance: ABIRATERONE

REACTIONS (2)
  - Surgery [None]
  - Full blood count decreased [None]
